FAERS Safety Report 11621135 (Version 1)
Quarter: 2015Q4

REPORT INFORMATION
  Report Type: Spontaneous
  Country: US (occurrence: US)
  Receive Date: 20151012
  Receipt Date: 20151012
  Transmission Date: 20160304
  Serious: Yes (Other)
  Sender: FDA-Public Use
  Company Number: US-NPS_PHARMACEUTICALS-001032

PATIENT
  Age: 29 Year
  Sex: Female

DRUGS (13)
  1. PROMETHAZINE [Concomitant]
     Active Substance: PROMETHAZINE\PROMETHAZINE HYDROCHLORIDE
     Indication: NAUSEA
     Dosage: 25 MG, EVERY 6 HRS PRN
  2. TPN [Concomitant]
     Active Substance: AMINO ACIDS\DEXTROSE\ELECTROLYTES NOS\SOYBEAN OIL
     Dosage: STREN/VOLUM: 2110 ML PER INFUSION|FREQU: INFUSED OVER 12 HOURS FOUR TIMES A WEEK
  3. VITAMIN D2 [Concomitant]
     Active Substance: ERGOCALCIFEROL
     Dosage: WEEKLY
  4. VITAMIN E [Concomitant]
     Active Substance: .ALPHA.-TOCOPHEROL
  5. XIFAXA [Concomitant]
  6. TPN [Concomitant]
     Active Substance: AMINO ACIDS\DEXTROSE\ELECTROLYTES NOS\SOYBEAN OIL
     Indication: MEDICAL DIET
     Dosage: STREN/VOLUM: 2110 ML PER INFUSION|FREQU: INFUSED OVER 12 HOURS THREE TIMES A WEEK
  7. GATTEX [Suspect]
     Active Substance: TEDUGLUTIDE\WATER
     Dosage: TREN/VOLUM: 0.26 ML|FREQU: ONCE DAILY
     Route: 058
     Dates: start: 201407, end: 20140723
  8. MOTILIUM [Concomitant]
     Active Substance: DOMPERIDONE
     Indication: FUNCTIONAL GASTROINTESTINAL DISORDER
  9. VITAMIN C [Concomitant]
     Active Substance: ASCORBIC ACID
  10. GATTEX [Suspect]
     Active Substance: TEDUGLUTIDE\WATER
     Indication: SHORT-BOWEL SYNDROME
     Dosage: STREN/VOLUM: 0.26 ML|FREQU: ONCE A DAY
     Route: 058
     Dates: start: 20140509, end: 20140703
  11. TPN [Concomitant]
     Active Substance: AMINO ACIDS\DEXTROSE\ELECTROLYTES NOS\SOYBEAN OIL
     Dosage: STREN/VOLUM: 2110 ML|FREQU: 3 TIMES A WEEK
  12. VITAMIN A [Concomitant]
     Active Substance: VITAMIN A
  13. XIFAXAN [Concomitant]
     Active Substance: RIFAXIMIN
     Indication: BACTERIAL TEST POSITIVE

REACTIONS (13)
  - Injection site erythema [Recovered/Resolved]
  - Cardiac failure congestive [Not Recovered/Not Resolved]
  - Flatulence [Recovered/Resolved]
  - Sinus tachycardia [Not Recovered/Not Resolved]
  - Oedema peripheral [Not Recovered/Not Resolved]
  - Infrequent bowel movements [Recovered/Resolved]
  - Blood albumin decreased [Not Recovered/Not Resolved]
  - Drug dose omission [None]
  - Abdominal pain upper [Recovered/Resolved]
  - Jugular vein distension [Not Recovered/Not Resolved]
  - Urinary tract infection [Recovering/Resolving]
  - Fluid retention [Not Recovered/Not Resolved]
  - Injection site pain [Recovered/Resolved]

NARRATIVE: CASE EVENT DATE: 201405
